FAERS Safety Report 8082575-7 (Version None)
Quarter: 2012Q1

REPORT INFORMATION
  Report Type: 
  Country: None (occurrence: None)
  Receive Date: 20120127
  Receipt Date: 20110223
  Transmission Date: 20120608
  Serious: No
  Sender: FDA-Public Use
  Company Number: US-ABBOTT-11P-163-0706985-00

PATIENT
  Sex: Female
  Weight: 52.21 kg

DRUGS (5)
  1. RECLAST [Concomitant]
     Indication: OSTEOPOROSIS
     Route: 042
  2. CELEBREX [Concomitant]
     Indication: RHEUMATOID ARTHRITIS
     Route: 048
  3. HUMIRA [Suspect]
     Route: 058
     Dates: start: 20090701, end: 20110101
  4. HUMIRA [Suspect]
     Indication: RHEUMATOID ARTHRITIS
     Route: 058
     Dates: start: 20110101
  5. CRESTOR [Concomitant]
     Indication: BLOOD CHOLESTEROL INCREASED
     Route: 048

REACTIONS (2)
  - JOINT SWELLING [None]
  - INJECTION SITE SWELLING [None]
